FAERS Safety Report 9602167 (Version 1)
Quarter: 2013Q4

REPORT INFORMATION
  Report Type: Spontaneous
  Country: US (occurrence: None)
  Receive Date: 20131004
  Receipt Date: 20131004
  Transmission Date: 20140711
  Serious: Yes (Other)
  Sender: FDA-Public Use
  Company Number: None

PATIENT
  Age: 68 Year
  Sex: Male
  Weight: 93.8 kg

DRUGS (1)
  1. HYDROMORPHONE [Suspect]
     Dates: start: 20130605

REACTIONS (3)
  - Rib fracture [None]
  - Fall [None]
  - Overdose [None]
